FAERS Safety Report 10335403 (Version 1)
Quarter: 2014Q3

REPORT INFORMATION
  Report Type: Spontaneous
  Country: GB (occurrence: None)
  Receive Date: 20140721
  Receipt Date: 20140721
  Transmission Date: 20150326
  Serious: Yes (Hospitalization)
  Sender: FDA-Public Use
  Company Number: AUR-APL-2014-07686

PATIENT
  Age: 12 Year
  Sex: Male
  Weight: 32 kg

DRUGS (2)
  1. TOPIRAMATE. [Suspect]
     Active Substance: TOPIRAMATE
     Indication: EPILEPSY
     Route: 048
     Dates: start: 20140501, end: 20140520
  2. OXCARBAZEPINE (OXACARBAZEPINE) [Concomitant]

REACTIONS (3)
  - Abnormal behaviour [None]
  - Encephalopathy [None]
  - Ataxia [None]

NARRATIVE: CASE EVENT DATE: 20140516
